FAERS Safety Report 11629509 (Version 4)
Quarter: 2016Q1

REPORT INFORMATION
  Report Type: Spontaneous
  Country: FR (occurrence: FR)
  Receive Date: 20151014
  Receipt Date: 20160114
  Transmission Date: 20160525
  Serious: Yes (Disabling)
  Sender: FDA-Public Use
  Company Number: FR-BRACCO-001978

PATIENT
  Age: 46 Year
  Sex: Female

DRUGS (3)
  1. ALTIM [Suspect]
     Active Substance: CORTIVAZOL
     Dosage: INJECTION
     Dates: start: 20110419, end: 20110419
  2. IOPAMIRON [Suspect]
     Active Substance: IOPAMIDOL
     Indication: COMPUTERISED TOMOGRAM
     Dosage: ROUTE: PERIARTICULAR L5S1
     Route: 052
     Dates: start: 20110419, end: 20110419
  3. XYLOCAINE [Suspect]
     Active Substance: LIDOCAINE HYDROCHLORIDE
     Dosage: INJECTION
     Dates: start: 20110419, end: 20110419

REACTIONS (5)
  - Paralysis [Unknown]
  - Tremor [Unknown]
  - Pyramidal tract syndrome [Unknown]
  - Fatigue [Unknown]
  - Pain [Unknown]

NARRATIVE: CASE EVENT DATE: 20110419
